FAERS Safety Report 9247714 (Version 1)
Quarter: 2013Q2

REPORT INFORMATION
  Report Type: Spontaneous
  Country: US (occurrence: US)
  Receive Date: 20130423
  Receipt Date: 20130423
  Transmission Date: 20140414
  Serious: Yes (Life-Threatening, Other)
  Sender: FDA-Public Use
  Company Number: US-PFIZER INC-2013124308

PATIENT
  Sex: Male

DRUGS (1)
  1. NEURONTIN [Suspect]

REACTIONS (1)
  - Apparent death [Recovered/Resolved]
